FAERS Safety Report 17391126 (Version 6)
Quarter: 2020Q1

REPORT INFORMATION
  Report Type: Spontaneous
  Country: CZ (occurrence: CZ)
  Receive Date: 20200207
  Receipt Date: 20200331
  Transmission Date: 20200409
  Serious: Yes (Death, Other)
  Sender: FDA-Public Use
  Company Number: CZ-PFIZER INC-2020053543

PATIENT
  Age: 56 Year
  Sex: Male

DRUGS (10)
  1. CRESEMBA [Suspect]
     Active Substance: ISAVUCONAZONIUM SULFATE
     Indication: TRICHOSPORON INFECTION
  2. VFEND [Suspect]
     Active Substance: VORICONAZOLE
     Indication: RENAL IMPAIRMENT
  3. CRESEMBA [Suspect]
     Active Substance: ISAVUCONAZONIUM SULFATE
     Indication: ASPERGILLUS INFECTION
  4. VFEND [Suspect]
     Active Substance: VORICONAZOLE
     Indication: TRICHOSPORON INFECTION
  5. ABELCET [Suspect]
     Active Substance: AMPHOTERICIN B\DIMYRISTOYLPHOSPHATIDYLCHOLINE, DL-\DIMYRISTOYLPHOSPHATIDYLGLYCEROL, DL-
     Indication: GASTRIC ULCER PERFORATION
     Dosage: UNK
     Route: 042
     Dates: start: 202001
  6. CRESEMBA [Suspect]
     Active Substance: ISAVUCONAZONIUM SULFATE
     Indication: MUCORMYCOSIS
  7. VFEND [Suspect]
     Active Substance: VORICONAZOLE
     Indication: ASPERGILLUS INFECTION
  8. VFEND [Suspect]
     Active Substance: VORICONAZOLE
     Indication: MUCORMYCOSIS
  9. CRESEMBA [Suspect]
     Active Substance: ISAVUCONAZONIUM SULFATE
     Indication: GASTRIC ULCER PERFORATION
     Dosage: 200 MG, UNK
     Route: 042
  10. VFEND [Suspect]
     Active Substance: VORICONAZOLE
     Indication: GASTRIC ULCER PERFORATION
     Dosage: 200 MG, 2X/DAY (200 MG, 2 IN 1 D)
     Route: 042

REACTIONS (4)
  - Disease progression [Fatal]
  - Product use in unapproved indication [Unknown]
  - Gastrointestinal fungal infection [Fatal]
  - Off label use [Unknown]
